FAERS Safety Report 10010504 (Version 2)
Quarter: 2014Q1

REPORT INFORMATION
  Report Type: Spontaneous
  Country: US (occurrence: US)
  Receive Date: 20140314
  Receipt Date: 20140314
  Transmission Date: 20141002
  Serious: Yes (Hospitalization)
  Sender: FDA-Public Use
  Company Number: US-UCBSA-108116

PATIENT
  Age: 60 Year
  Sex: Male
  Weight: 106 kg

DRUGS (13)
  1. CIMZIA [Suspect]
     Indication: RHEUMATOID ARTHRITIS
     Dosage: TOOK FOR ABOUT 6 MONTHS
     Dates: start: 201307, end: 201312
  2. NOVOLGO [Concomitant]
     Indication: DIABETES MELLITUS
     Dosage: 28 UNITS IN AM AND 18 UNITS IN PM BEFORE MEALS, 46 TOTAL UNITS
  3. BENAZEPRIL [Concomitant]
     Indication: BLOOD PRESSURE
     Route: 048
  4. LASIX [Concomitant]
     Indication: BLOOD PRESSURE
     Route: 048
  5. LEVOTHYROXINE [Concomitant]
     Indication: THYROID DISORDER
     Route: 048
  6. GABAPENTIN [Concomitant]
     Route: 048
  7. SINGULAIR [Concomitant]
     Indication: ASTHMA
     Route: 048
  8. ULORIC [Concomitant]
     Indication: GOUT
     Route: 048
  9. TOPRAL [Concomitant]
     Route: 048
  10. COLCHICINE [Concomitant]
     Indication: GOUT
     Dosage: PRN
     Route: 048
  11. BABY ASA [Concomitant]
     Indication: CEREBROVASCULAR ACCIDENT PROPHYLAXIS
     Route: 048
  12. ACTEMRA [Concomitant]
     Indication: RHEUMATOID ARTHRITIS
     Dosage: 162MCG
     Route: 048
  13. LORTAB [Concomitant]
     Indication: PAIN
     Dosage: 7.5/500MG
     Route: 048

REACTIONS (5)
  - Cystitis [Recovered/Resolved]
  - Kidney infection [Recovered/Resolved]
  - Nephrolithiasis [Recovered/Resolved]
  - Ear infection [Not Recovered/Not Resolved]
  - Drug ineffective [Recovered/Resolved]
